FAERS Safety Report 5032532-X (Version None)
Quarter: 2006Q2

REPORT INFORMATION
  Report Type: 
  Country: None (occurrence: None)
  Receive Date: 20060515
  Receipt Date: 20060118
  Transmission Date: 20061013
  Serious: No
  Sender: FDA-Public Use
  Company Number: S06-USA-00244-01

PATIENT
  Sex: Male

DRUGS (5)
  1. NAMENDA [Suspect]
     Dosage: 10 MG BID PO
     Route: 048
  2. NAMENDA [Suspect]
     Dosage: 5 MG QD PO
     Route: 048
  3. NAMENDA [Suspect]
     Dosage: 5 MG BID PO
     Route: 048
  4. NAMENDA [Suspect]
     Dosage: 15 MG QD PO
     Route: 048
  5. NAMENDA [Suspect]
     Dosage: 5 MG BID PO
     Route: 048

REACTIONS (1)
  - RASH [None]
